FAERS Safety Report 18144560 (Version 2)
Quarter: 2020Q3

REPORT INFORMATION
  Report Type: Spontaneous
  Country: JP (occurrence: JP)
  Receive Date: 20200813
  Receipt Date: 20200911
  Transmission Date: 20201103
  Serious: Yes (Other)
  Sender: FDA-Public Use
  Company Number: NVSJ2020JP007814

PATIENT
  Age: 25 Year
  Sex: Female

DRUGS (2)
  1. SANDIMMUN SOLUTION [Suspect]
     Active Substance: CYCLOSPORINE
     Indication: PROPHYLAXIS AGAINST GRAFT VERSUS HOST DISEASE
     Dosage: UNK
     Route: 065
  2. MTX [Concomitant]
     Active Substance: METHOTREXATE SODIUM
     Indication: PROPHYLAXIS AGAINST GRAFT VERSUS HOST DISEASE
     Dosage: UNK
     Route: 065

REACTIONS (8)
  - Adrenal insufficiency [Unknown]
  - Altered state of consciousness [Unknown]
  - Blood pressure decreased [Unknown]
  - Acute lymphocytic leukaemia recurrent [Unknown]
  - Mass [Unknown]
  - Breast mass [Unknown]
  - Dizziness [Unknown]
  - Periorbital swelling [Unknown]
